FAERS Safety Report 8444886-2 (Version None)
Quarter: 2012Q2

REPORT INFORMATION
  Report Type: 
  Country: None (occurrence: None)
  Receive Date: 20120323
  Receipt Date: 20110816
  Transmission Date: 20120825
  Serious: Yes (Hospitalization)
  Sender: FDA-Public Use
  Company Number: 163-21880-11082114

PATIENT
  Sex: Male

DRUGS (5)
  1. REVLIMID [Suspect]
     Indication: MULTIPLE MYELOMA
     Dosage: 5 MG, 1 IN 1 D, PO
     Route: 048
     Dates: start: 20080718
  2. ADVAIR (SERETIDE MITE) (UNKNOWN) [Concomitant]
  3. LANTUS [Concomitant]
  4. TYLENOL (PARACETAMOL) (UNKNOWN) [Concomitant]
  5. HUMALOG (INSULIN LISPRO) (UNKNOWN) [Concomitant]

REACTIONS (3)
  - PYREXIA [None]
  - LETHARGY [None]
  - ASTHENIA [None]
